FAERS Safety Report 9690441 (Version 1)
Quarter: 2013Q4

REPORT INFORMATION
  Report Type: Spontaneous
  Country: US (occurrence: None)
  Receive Date: 20131114
  Receipt Date: 20131114
  Transmission Date: 20140711
  Serious: Yes (Other)
  Sender: FDA-Public Use
  Company Number: None

PATIENT
  Age: 16 Year
  Sex: Male
  Weight: 54.89 kg

DRUGS (1)
  1. FLUORESCEIN SODIUM [Suspect]
     Indication: OPHTHALMOLOGICAL EXAMINATION
     Route: 042
     Dates: start: 20131001

REACTIONS (4)
  - Vomiting [None]
  - Throat irritation [None]
  - Rash [None]
  - Cardio-respiratory arrest [None]
